FAERS Safety Report 7721339-8 (Version None)
Quarter: 2011Q3

REPORT INFORMATION
  Report Type: 
  Country: None (occurrence: None)
  Receive Date: 20110831
  Receipt Date: 20100517
  Transmission Date: 20111222
  Serious: No
  Sender: FDA-Public Use
  Company Number: US-BAYER-201023441NA

PATIENT
  Sex: Female

DRUGS (2)
  1. IBUPROFEN (ADVIL) [Concomitant]
  2. YAZ [Suspect]

REACTIONS (2)
  - HEADACHE [None]
  - ABDOMINAL PAIN LOWER [None]
